FAERS Safety Report 6979660-7 (Version None)
Quarter: 2010Q3

REPORT INFORMATION
  Report Type: 
  Country: None (occurrence: None)
  Receive Date: 20100910
  Receipt Date: 20100910
  Transmission Date: 20110219
  Serious: Yes (Life-Threatening, Other)
  Sender: FDA-Public Use
  Company Number: None

PATIENT
  Sex: Female
  Weight: 83.0083 kg

DRUGS (2)
  1. ABILIFY [Suspect]
     Indication: SLEEP DISORDER THERAPY
     Dosage: 5MG 1 EVENING
  2. SAPHRIS [Suspect]
     Indication: SLEEP DISORDER THERAPY
     Dosage: 10MG 1 EVENING

REACTIONS (8)
  - BURNING SENSATION [None]
  - CONSTIPATION [None]
  - ERYTHEMA [None]
  - JOINT SWELLING [None]
  - MUSCULOSKELETAL STIFFNESS [None]
  - OEDEMA PERIPHERAL [None]
  - PAIN [None]
  - SWELLING [None]
